FAERS Safety Report 6987567-4 (Version None)
Quarter: 2010Q3

REPORT INFORMATION
  Report Type: 
  Country: None (occurrence: None)
  Receive Date: 20100916
  Receipt Date: 20100907
  Transmission Date: 20110219
  Serious: Yes (Other)
  Sender: FDA-Public Use
  Company Number: US-PFIZER INC-2010113137

PATIENT
  Sex: Male
  Weight: 68.027 kg

DRUGS (4)
  1. CHANTIX [Suspect]
     Indication: SMOKING CESSATION THERAPY
     Dosage: 0.5 MG, 1X/DAY
     Route: 048
     Dates: start: 20100101, end: 20100501
  2. HYDROCODONE [Concomitant]
     Dosage: 7.5 MG, 3X/DAY
     Route: 048
  3. LOTREL [Concomitant]
     Indication: HYPERTENSION
     Dosage: [AMLODIPINE 10MG]/[BENAZEPRIL 20 MG], 1X/DAY
     Route: 048
  4. FLEXERIL [Concomitant]
     Indication: MUSCLE SPASMS
     Dosage: 10 MG, UNK
     Route: 048

REACTIONS (4)
  - ABNORMAL DREAMS [None]
  - ANXIETY [None]
  - DEPRESSION [None]
  - SLEEP TALKING [None]
